FAERS Safety Report 22156647 (Version 1)
Quarter: 2023Q1

REPORT INFORMATION
  Report Type: Spontaneous
  Country: US (occurrence: None)
  Receive Date: 20230329
  Receipt Date: 20230329
  Transmission Date: 20230418
  Serious: Yes (Hospitalization)
  Sender: FDA-Public Use
  Company Number: None

PATIENT
  Sex: Female

DRUGS (3)
  1. NUCALA [Suspect]
     Active Substance: MEPOLIZUMAB
     Indication: Asthma
     Dosage: INJECT 100MG UNDER THE SKIN (SUBCUTANEOUS INJECTION)EVERY 4 WEEKS TO UPPER ARM, THIGH OR ABDOMEN.
     Route: 058
     Dates: start: 20221203
  2. CUVITRU [Concomitant]
  3. EPINEPHRINE [Concomitant]
     Active Substance: EPINEPHRINE

REACTIONS (1)
  - Asthma [None]
